FAERS Safety Report 16668900 (Version 1)
Quarter: 2019Q3

REPORT INFORMATION
  Report Type: Spontaneous
  Country: US (occurrence: US)
  Receive Date: 20190805
  Receipt Date: 20190805
  Transmission Date: 20191004
  Serious: Yes (Other)
  Sender: FDA-Public Use
  Company Number: US-GILEAD-2019-0421675

PATIENT
  Age: 41 Year
  Sex: Male

DRUGS (2)
  1. PROTONIX [OMEPRAZOLE] [Concomitant]
     Active Substance: OMEPRAZOLE
  2. TRUVADA [Suspect]
     Active Substance: EMTRICITABINE\TENOFOVIR DISOPROXIL FUMARATE
     Indication: PROPHYLAXIS AGAINST HIV INFECTION
     Dosage: UNK
     Route: 065

REACTIONS (4)
  - Bone density abnormal [Unknown]
  - Subcutaneous abscess [Unknown]
  - Renal disorder [Unknown]
  - Arthropod bite [Unknown]

NARRATIVE: CASE EVENT DATE: 2018
